FAERS Safety Report 5633523-8 (Version None)
Quarter: 2008Q1

REPORT INFORMATION
  Report Type: 
  Country: None (occurrence: None)
  Receive Date: 20080221
  Receipt Date: 20080213
  Transmission Date: 20080703
  Serious: Yes (Hospitalization)
  Sender: FDA-Public Use
  Company Number: US-ELI_LILLY_AND_COMPANY-US200802003071

PATIENT
  Age: 19 Year
  Sex: Female

DRUGS (2)
  1. CYMBALTA [Suspect]
     Indication: DEPRESSION
     Dosage: 60 MG, DAILY (1/D)
  2. WELLBUTRIN XL [Concomitant]
     Dosage: 300 MG, UNK

REACTIONS (4)
  - HALLUCINATION [None]
  - ROAD TRAFFIC ACCIDENT [None]
  - SPINAL CORD PARALYSIS [None]
  - SPINAL FRACTURE [None]
